FAERS Safety Report 5836811-5 (Version None)
Quarter: 2008Q3

REPORT INFORMATION
  Report Type: 
  Country: None (occurrence: None)
  Receive Date: 20080806
  Receipt Date: 20080806
  Transmission Date: 20090109
  Serious: Yes (Hospitalization)
  Sender: FDA-Public Use
  Company Number: None

PATIENT
  Age: 66 Year
  Sex: Female
  Weight: 86 kg

DRUGS (5)
  1. SIMVASTATIN [Suspect]
     Indication: BLOOD CHOLESTEROL
     Dosage: 80 MG DAILY PO, OVER 2 YEARS
     Route: 048
  2. GINGKO BILOBA [Suspect]
     Indication: MEMORY IMPAIRMENT
     Dosage: WITHIN LAST 2 MONTHS
  3. ACTOS [Concomitant]
  4. METFORMIN HCL [Concomitant]
  5. SPIRONOLACTONE [Concomitant]

REACTIONS (6)
  - ASTHENIA [None]
  - FALL [None]
  - MUSCULAR WEAKNESS [None]
  - MYOSITIS [None]
  - PAIN IN EXTREMITY [None]
  - RHABDOMYOLYSIS [None]
